FAERS Safety Report 5745061-2 (Version None)
Quarter: 2008Q2

REPORT INFORMATION
  Report Type: 
  Country: None (occurrence: None)
  Receive Date: 20080521
  Receipt Date: 20080513
  Transmission Date: 20081010
  Serious: Yes (Other)
  Sender: FDA-Public Use
  Company Number: DE-AMGEN-UK272116

PATIENT
  Sex: Female
  Weight: 56 kg

DRUGS (1)
  1. KINERET [Suspect]
     Indication: JUVENILE ARTHRITIS
     Route: 058
     Dates: start: 20051001, end: 20080403

REACTIONS (5)
  - ANGIOEDEMA [None]
  - DYSPNOEA [None]
  - HOT FLUSH [None]
  - HYPERSENSITIVITY [None]
  - RASH GENERALISED [None]
